FAERS Safety Report 7235011-4 (Version None)
Quarter: 2011Q1

REPORT INFORMATION
  Report Type: 
  Country: None (occurrence: None)
  Receive Date: 20110114
  Receipt Date: 20110114
  Transmission Date: 20110831
  Serious: No
  Sender: FDA-Public Use
  Company Number: None

PATIENT
  Age: 84 Year
  Sex: Male
  Weight: 68.0396 kg

DRUGS (2)
  1. LEVAQUIN [Suspect]
     Indication: COUGH
     Dosage: 500MG ONE TABLET DAILEY PO
     Route: 048
     Dates: start: 20110103, end: 20110106
  2. LEVAQUIN [Suspect]
     Indication: INCREASED UPPER AIRWAY SECRETION
     Dosage: 500MG ONE TABLET DAILEY PO
     Route: 048
     Dates: start: 20110103, end: 20110106

REACTIONS (2)
  - PAIN IN EXTREMITY [None]
  - MUSCULOSKELETAL STIFFNESS [None]
